FAERS Safety Report 10703530 (Version 2)
Quarter: 2015Q1

REPORT INFORMATION
  Report Type: Report from Study
  Country: DE (occurrence: DE)
  Receive Date: 20150112
  Receipt Date: 20150119
  Transmission Date: 20150721
  Serious: Yes (Hospitalization, Other)
  Sender: FDA-Public Use
  Company Number: PHHY2015DE001745

PATIENT
  Age: 45 Year
  Sex: Male
  Weight: 56.5 kg

DRUGS (1)
  1. LDK378 [Suspect]
     Active Substance: CERITINIB
     Indication: PRODUCT USED FOR UNKNOWN INDICATION
     Route: 065

REACTIONS (4)
  - Epilepsy [Unknown]
  - Metastases to central nervous system [Unknown]
  - Disease progression [Unknown]
  - Hepatic enzyme increased [Unknown]
